FAERS Safety Report 17770664 (Version 1)
Quarter: 2020Q2

REPORT INFORMATION
  Report Type: Spontaneous
  Country: GB (occurrence: GB)
  Receive Date: 20200512
  Receipt Date: 20200512
  Transmission Date: 20200714
  Serious: Yes (Life-Threatening, Disabling, Other)
  Sender: FDA-Public Use
  Company Number: NVSC2020GB128357

PATIENT
  Age: 44 Year
  Sex: Female
  Weight: 76 kg

DRUGS (2)
  1. OMEPRAZOLE. [Suspect]
     Active Substance: OMEPRAZOLE
     Indication: IRRITABLE BOWEL SYNDROME
     Dosage: 20 MG
     Route: 048
     Dates: start: 20040205, end: 20080207
  2. LEVOTHYROXINE SODIUM. [Suspect]
     Active Substance: LEVOTHYROXINE SODIUM
     Indication: HYPOTHYROIDISM
     Dosage: 125 UG
     Route: 048
     Dates: start: 20040205, end: 20080207

REACTIONS (9)
  - Gingival bleeding [Unknown]
  - Helicobacter infection [Unknown]
  - Abdominal pain upper [Unknown]
  - Myalgia [Unknown]
  - Condition aggravated [Unknown]
  - Ulcer [Unknown]
  - Fatigue [Unknown]
  - Platelet count decreased [Unknown]
  - Headache [Unknown]
